FAERS Safety Report 5469498-4 (Version None)
Quarter: 2007Q3

REPORT INFORMATION
  Report Type: 
  Country: None (occurrence: None)
  Receive Date: 20070927
  Receipt Date: 20070924
  Transmission Date: 20080115
  Serious: Yes (Death, Hospitalization)
  Sender: FDA-Public Use
  Company Number: A0683831A

PATIENT
  Age: 68 Year
  Sex: Male

DRUGS (6)
  1. COREG [Suspect]
     Route: 048
     Dates: start: 20050101
  2. ALTACE [Concomitant]
  3. LIPITOR [Concomitant]
  4. FUROSEMIDE [Concomitant]
  5. COUMADIN [Concomitant]
  6. MEDICATION FOR FLUID RETENTION [Concomitant]

REACTIONS (2)
  - COLON CANCER [None]
  - MYOCARDIAL INFARCTION [None]
